FAERS Safety Report 6654451-5 (Version None)
Quarter: 2010Q1

REPORT INFORMATION
  Report Type: 
  Country: None (occurrence: None)
  Receive Date: 20100326
  Receipt Date: 20100319
  Transmission Date: 20100710
  Serious: Yes (Hospitalization)
  Sender: FDA-Public Use
  Company Number: AR-JNJFOC-20100306918

PATIENT
  Age: 11 Month
  Sex: Male

DRUGS (1)
  1. IBUPIRAC 2% [Suspect]
     Indication: PYREXIA

REACTIONS (3)
  - DRUG HYPERSENSITIVITY [None]
  - PRODUCT QUALITY ISSUE [None]
  - SKIN DISORDER [None]
